FAERS Safety Report 7532938-0 (Version None)
Quarter: 2011Q2

REPORT INFORMATION
  Report Type: 
  Country: None (occurrence: None)
  Receive Date: 20110607
  Receipt Date: 20110607
  Transmission Date: 20111010
  Serious: Yes (Other)
  Sender: FDA-Public Use
  Company Number: None

PATIENT
  Age: 45 Year
  Sex: Female

DRUGS (1)
  1. LARIGLUTIDE 6MG/ML [Suspect]
     Indication: TYPE 2 DIABETES MELLITUS
     Dosage: 1.2MG DAILY SQ
     Route: 058
     Dates: start: 20110216, end: 20110311

REACTIONS (1)
  - GASTROOESOPHAGEAL REFLUX DISEASE [None]
